FAERS Safety Report 7366681-8 (Version None)
Quarter: 2011Q1

REPORT INFORMATION
  Report Type: 
  Country: None (occurrence: None)
  Receive Date: 20110225
  Receipt Date: 20101112
  Transmission Date: 20110831
  Serious: No
  Sender: FDA-Public Use
  Company Number: 318398

PATIENT
  Age: 71 Year
  Sex: Female

DRUGS (3)
  1. METFORMIN HCL [Concomitant]
  2. LANTUS [Concomitant]
  3. VICTOZA [Suspect]
     Indication: TYPE 2 DIABETES MELLITUS
     Dosage: 1.2 MG, QD, SUBCUTANEOUS
     Route: 058

REACTIONS (2)
  - BLOOD PRESSURE DECREASED [None]
  - THERAPEUTIC RESPONSE UNEXPECTED [None]
